FAERS Safety Report 17741366 (Version 2)
Quarter: 2020Q2

REPORT INFORMATION
  Report Type: Report from Study
  Country: US (occurrence: US)
  Receive Date: 20200504
  Receipt Date: 20200624
  Transmission Date: 20200714
  Serious: No
  Sender: FDA-Public Use
  Company Number: NVSC2020US119208

PATIENT
  Sex: Male

DRUGS (1)
  1. COSENTYX [Suspect]
     Active Substance: SECUKINUMAB
     Indication: PSORIASIS
     Dosage: ONCE WEEKLY FOR 5 WEEKS THEN ONCE
     Route: 058

REACTIONS (4)
  - Pruritus [Unknown]
  - Rash [Unknown]
  - Feeling hot [Unknown]
  - Dry skin [Unknown]
